FAERS Safety Report 9026019 (Version 1)
Quarter: 2013Q1

REPORT INFORMATION
  Report Type: Spontaneous
  Country: US (occurrence: US)
  Receive Date: 20130122
  Receipt Date: 20130122
  Transmission Date: 20140127
  Serious: Yes (Hospitalization, Other)
  Sender: FDA-Public Use
  Company Number: US-BAYER-2013-008059

PATIENT
  Age: 54 Year
  Sex: Male

DRUGS (2)
  1. CIPROFLOXACIN BETAIN [Suspect]
     Indication: DIVERTICULITIS
     Route: 042
  2. METRONIDAZOLE [Concomitant]

REACTIONS (3)
  - Anaphylactic reaction [None]
  - Arteriospasm coronary [None]
  - Acute myocardial infarction [None]
